FAERS Safety Report 7121860-X (Version None)
Quarter: 2010Q4

REPORT INFORMATION
  Report Type: 
  Country: None (occurrence: None)
  Receive Date: 20101124
  Receipt Date: 20101116
  Transmission Date: 20110411
  Serious: Yes (Other)
  Sender: FDA-Public Use
  Company Number: US-AMGEN-USASP2010003295

PATIENT

DRUGS (11)
  1. NPLATE [Suspect]
     Indication: IDIOPATHIC THROMBOCYTOPENIC PURPURA
     Dosage: 1 A?G/KG, UNK
     Dates: start: 20100513, end: 20100520
  2. RITUXIMAB [Concomitant]
     Dosage: UNK
     Dates: start: 20100513
  3. PERCOCET [Concomitant]
     Dosage: UNK
     Dates: start: 20100513
  4. LEVOTHYROXINE SODIUM [Concomitant]
     Dosage: UNK
     Dates: start: 20100429
  5. METOCLOPRAMIDE [Concomitant]
     Dosage: UNK
     Dates: start: 20100513
  6. TYLENOL (CAPLET) [Concomitant]
     Dosage: UNK
     Dates: start: 20100505
  7. BUMETANIDE [Concomitant]
  8. CLONIDINE [Concomitant]
  9. METOPROLOL [Concomitant]
     Dosage: 50 MG, UNK
  10. DILTIAZEM [Concomitant]
  11. INSULIN [Concomitant]

REACTIONS (1)
  - PLATELET COUNT INCREASED [None]
